FAERS Safety Report 6356626-1 (Version None)
Quarter: 2009Q3

REPORT INFORMATION
  Report Type: 
  Country: None (occurrence: None)
  Receive Date: 20090915
  Receipt Date: 20090904
  Transmission Date: 20100115
  Serious: Yes (Life-Threatening, Hospitalization)
  Sender: FDA-Public Use
  Company Number: JP-JNJFOC-20090701668

PATIENT
  Sex: Male
  Weight: 52 kg

DRUGS (9)
  1. REMICADE [Suspect]
     Dosage: 4TH INFUSION
     Route: 042
     Dates: start: 20081112, end: 20090217
  2. REMICADE [Suspect]
     Route: 042
     Dates: start: 20081112, end: 20090217
  3. REMICADE [Suspect]
     Route: 042
     Dates: start: 20081112, end: 20090217
  4. REMICADE [Suspect]
     Indication: CROHN'S DISEASE
     Route: 042
     Dates: start: 20081112, end: 20090217
  5. LEUKERIN [Concomitant]
     Route: 048
  6. PENTASA [Concomitant]
     Indication: CROHN'S DISEASE
     Route: 048
  7. ELENTAL [Concomitant]
     Indication: CROHN'S DISEASE
     Dosage: 3PAC
     Route: 048
  8. IMURAN [Concomitant]
     Indication: CROHN'S DISEASE
     Dosage: 50 MG ALTERNATE DAYS
     Route: 048
  9. FERROUS CITRATE [Concomitant]
     Route: 048

REACTIONS (2)
  - IMPAIRED HEALING [None]
  - RECTAL CANCER [None]
